FAERS Safety Report 6996873-9 (Version None)
Quarter: 2010Q3

REPORT INFORMATION
  Report Type: 
  Country: None (occurrence: None)
  Receive Date: 20100918
  Receipt Date: 20090805
  Transmission Date: 20110219
  Serious: No
  Sender: FDA-Public Use
  Company Number: US-WYE-H10476809

PATIENT
  Age: 40 Year
  Sex: Male

DRUGS (3)
  1. EFFEXOR XR [Suspect]
     Indication: ANXIETY
     Dosage: UNKNOWN DOSE - HIGHEST DOSE WAS 75 MG DAILY
     Route: 048
     Dates: start: 20040101
  2. EFFEXOR XR [Suspect]
     Dosage: HAS BEEN TAPERING OFF - DOSE REGIMEN NOT PROVIDED
     Route: 048
     Dates: end: 20090701
  3. EFFEXOR XR [Suspect]
     Route: 048
     Dates: start: 20090701

REACTIONS (5)
  - ANGER [None]
  - ANXIETY [None]
  - DIZZINESS [None]
  - DRUG WITHDRAWAL SYNDROME [None]
  - PARAESTHESIA [None]
